FAERS Safety Report 15181665 (Version 1)
Quarter: 2018Q3

REPORT INFORMATION
  Report Type: Spontaneous
  Country: FR (occurrence: FR)
  Receive Date: 20180723
  Receipt Date: 20180723
  Transmission Date: 20181010
  Serious: Yes (Death, Life-Threatening, Other)
  Sender: FDA-Public Use
  Company Number: FR-ASPEN-GLO2018FR005635

PATIENT
  Age: 66 Year
  Sex: Male

DRUGS (3)
  1. ORGARAN [Suspect]
     Active Substance: DANAPAROID SODIUM
     Indication: ATRIAL FIBRILLATION
  2. ORGARAN [Suspect]
     Active Substance: DANAPAROID SODIUM
     Indication: BRAIN STEM STROKE
     Dosage: UNK
     Route: 050
  3. ORGARAN [Suspect]
     Active Substance: DANAPAROID SODIUM
     Indication: HEPARIN-INDUCED THROMBOCYTOPENIA
     Dosage: 2250 U
     Route: 042

REACTIONS (2)
  - Rectal haemorrhage [Unknown]
  - Septic shock [Fatal]

NARRATIVE: CASE EVENT DATE: 20180525
